FAERS Safety Report 5485573-2 (Version None)
Quarter: 2007Q4

REPORT INFORMATION
  Report Type: 
  Country: None (occurrence: None)
  Receive Date: 20071011
  Receipt Date: 20071011
  Transmission Date: 20080405
  Serious: No
  Sender: FDA-Public Use
  Company Number: None

PATIENT
  Age: 68 Year
  Sex: Female

DRUGS (8)
  1. LYRICA [Suspect]
     Indication: NEURALGIA
     Dosage: 50MG TID
     Dates: start: 20070901
  2. ELAVIL [Concomitant]
  3. LEXAPRO [Concomitant]
  4. LIPITOR [Concomitant]
  5. LISINOPRIL [Concomitant]
  6. HYDROCHL [Concomitant]
  7. NEXIUM [Concomitant]
  8. PLAVIX [Concomitant]

REACTIONS (3)
  - NIGHT SWEATS [None]
  - SINUS DISORDER [None]
  - SINUSITIS [None]
